FAERS Safety Report 5361977-3 (Version None)
Quarter: 2007Q2

REPORT INFORMATION
  Report Type: 
  Country: None (occurrence: None)
  Receive Date: 20070619
  Receipt Date: 20070605
  Transmission Date: 20071010
  Serious: Yes (Hospitalization, Other)
  Sender: FDA-Public Use
  Company Number: CA-ELI_LILLY_AND_COMPANY-CA200706001406

PATIENT
  Age: 62 Year
  Sex: Female

DRUGS (7)
  1. FORTEO [Suspect]
     Indication: OSTEOPOROSIS
     Dosage: 20 UG, DAILY (1/D)
     Route: 058
     Dates: start: 20060322
  2. HYDROMORPHONE HCL [Concomitant]
  3. DURAGESIC-100 [Concomitant]
  4. PAXIL [Concomitant]
  5. DOMPERIDONE [Concomitant]
  6. ATIVAN [Concomitant]
  7. IMOVANE [Concomitant]

REACTIONS (3)
  - ABDOMINAL PAIN [None]
  - HEPATIC INFECTION [None]
  - PANCREATITIS [None]
